FAERS Safety Report 11319111 (Version 1)
Quarter: 2015Q3

REPORT INFORMATION
  Report Type: Spontaneous
  Country: US (occurrence: None)
  Receive Date: 20150727
  Receipt Date: 20150727
  Transmission Date: 20151125
  Serious: Yes (Disabling)
  Sender: FDA-Public Use
  Company Number: None

PATIENT
  Age: 22 Year
  Sex: Female
  Weight: 55.34 kg

DRUGS (11)
  1. BRONSON THERAPEUTIC FORMULA DIETARY SUPPLEMENT (MULTIVITAMIN) [Concomitant]
  2. TR-MESSA [Concomitant]
  3. NASONEX [Concomitant]
     Active Substance: MOMETASONE FUROATE
  4. QVAR [Concomitant]
     Active Substance: BECLOMETHASONE DIPROPIONATE
  5. CLINDANYCIN/BENZOYL PEROXIDE [Concomitant]
  6. MUCINEX D [Concomitant]
     Active Substance: GUAIFENESIN\PSEUDOEPHEDRINE HYDROCHLORIDE
  7. VENTOLIN HFA [Concomitant]
     Active Substance: ALBUTEROL SULFATE
  8. MOXIFLOXACIN HYDROCHLORIDE. [Suspect]
     Active Substance: MOXIFLOXACIN HYDROCHLORIDE
     Indication: UPPER RESPIRATORY TRACT INFECTION
     Dosage: 1 PILL
     Route: 048
     Dates: start: 20150723, end: 20150723
  9. LORATADINE. [Concomitant]
     Active Substance: LORATADINE
  10. BRONSON CERTIFIED ORGANIC VITAMIN D3 2000IU DIETARY SUPPLEMENT [Concomitant]
  11. TRTINOIN [Concomitant]

REACTIONS (19)
  - Dizziness [None]
  - Feeling of body temperature change [None]
  - Hot flush [None]
  - Abdominal distension [None]
  - Arthropathy [None]
  - Fatigue [None]
  - Pain in extremity [None]
  - Paraesthesia [None]
  - Tenderness [None]
  - Muscular weakness [None]
  - Middle insomnia [None]
  - Balance disorder [None]
  - Anxiety [None]
  - Headache [None]
  - Eye pain [None]
  - Flatulence [None]
  - Insomnia [None]
  - Arthralgia [None]
  - Nausea [None]

NARRATIVE: CASE EVENT DATE: 20150723
